FAERS Safety Report 9169091 (Version 7)
Quarter: 2013Q4

REPORT INFORMATION
  Report Type: Report from Study
  Country: CA (occurrence: CA)
  Receive Date: 20130318
  Receipt Date: 20131023
  Transmission Date: 20140711
  Serious: Yes (Death, Hospitalization, Other)
  Sender: FDA-Public Use
  Company Number: CA-ROCHE-1170400

PATIENT
  Age: 30 Year
  Sex: Female
  Weight: 51.4 kg

DRUGS (6)
  1. AVASTIN [Suspect]
     Indication: OVARIAN CANCER
     Route: 042
     Dates: start: 20120320
  2. AVASTIN [Suspect]
     Route: 042
     Dates: start: 20120615
  3. AVASTIN [Suspect]
     Route: 042
     Dates: start: 20120904
  4. TAXOL [Suspect]
     Indication: OVARIAN CANCER
     Route: 042
     Dates: start: 20130225
  5. BENADRYL (CANADA) [Concomitant]
     Indication: PREMEDICATION
     Route: 048
     Dates: start: 20120320
  6. TYLENOL [Concomitant]
     Indication: PREMEDICATION
     Route: 048
     Dates: start: 20120320

REACTIONS (10)
  - Death [Fatal]
  - Intestinal obstruction [Unknown]
  - Ascites [Not Recovered/Not Resolved]
  - Carbohydrate antigen 125 increased [Unknown]
  - Nasopharyngitis [Recovering/Resolving]
  - Pain [Unknown]
  - Nausea [Unknown]
  - Weight decreased [Not Recovered/Not Resolved]
  - Fatigue [Not Recovered/Not Resolved]
  - Dehydration [Recovered/Resolved]
